FAERS Safety Report 17258833 (Version 1)
Quarter: 2020Q1

REPORT INFORMATION
  Report Type: Spontaneous
  Country: NL (occurrence: NL)
  Receive Date: 20200110
  Receipt Date: 20200110
  Transmission Date: 20200409
  Serious: Yes (Life-Threatening)
  Sender: FDA-Public Use
  Company Number: NL-MYLANLABS-2020M1004309

PATIENT
  Sex: Male
  Weight: 14 kg

DRUGS (1)
  1. PROPRANOLOL [Suspect]
     Active Substance: PROPRANOLOL HYDROCHLORIDE
     Indication: HYPERTROPHIC CARDIOMYOPATHY
     Dosage: 3 DD 20 MG
     Route: 048
     Dates: start: 2017

REACTIONS (2)
  - Hypoglycaemia [Recovered/Resolved]
  - Seizure [Recovered/Resolved]
